FAERS Safety Report 5846677-5 (Version None)
Quarter: 2008Q3

REPORT INFORMATION
  Report Type: 
  Country: None (occurrence: None)
  Receive Date: 20080815
  Receipt Date: 20080807
  Transmission Date: 20090109
  Serious: Yes (Other)
  Sender: FDA-Public Use
  Company Number: B0533211A

PATIENT
  Age: 43 Year
  Sex: Male

DRUGS (9)
  1. LAMIVUDINE [Suspect]
     Indication: HIV INFECTION
  2. STAVUDINE [Suspect]
     Indication: HIV INFECTION
  3. EFAVIRENZ [Suspect]
     Indication: HIV INFECTION
  4. ETHAMBUTOL HCL [Concomitant]
     Indication: TUBERCULOSIS
     Route: 048
  5. RIFABUTIN [Concomitant]
     Indication: TUBERCULOSIS
     Route: 048
  6. LEVOFLOXACIN [Concomitant]
     Indication: TUBERCULOSIS
     Route: 048
  7. LEVOFLOXACIN [Concomitant]
     Route: 051
  8. ENFUVIRTIDE [Concomitant]
     Indication: HIV INFECTION
     Route: 051
  9. STREPTOMYCIN [Concomitant]
     Indication: TUBERCULOSIS
     Route: 051

REACTIONS (7)
  - ABDOMINAL PAIN [None]
  - ABSCESS INTESTINAL [None]
  - ASCITES [None]
  - DISSEMINATED TUBERCULOSIS [None]
  - IMMUNE RECONSTITUTION SYNDROME [None]
  - PERITONITIS [None]
  - PYREXIA [None]
